FAERS Safety Report 9530043 (Version 1)
Quarter: 2013Q3

REPORT INFORMATION
  Report Type: Spontaneous
  Country: DK (occurrence: CH)
  Receive Date: 20130917
  Receipt Date: 20130917
  Transmission Date: 20140515
  Serious: Yes (Other)
  Sender: FDA-Public Use
  Company Number: CH-FRI-1000048804

PATIENT
  Sex: Female

DRUGS (6)
  1. ESCITALOPRAM [Suspect]
     Dosage: 15 MG
     Route: 048
     Dates: start: 2011, end: 20130615
  2. ESCITALOPRAM [Suspect]
     Dosage: 25 MG
     Route: 048
     Dates: start: 20130615
  3. ESCITALOPRAM [Suspect]
     Dosage: 10 MG QOD
  4. ESCITALOPRAM [Suspect]
     Dosage: 5 MG QOD
  5. SEROQUEL XR [Suspect]
     Dosage: 50 MG IN THE EVENING
     Route: 048
     Dates: start: 20130730
  6. TEMESTA [Concomitant]
     Dosage: 0.5 MG
     Dates: start: 201308

REACTIONS (3)
  - Agitation [Not Recovered/Not Resolved]
  - Condition aggravated [Not Recovered/Not Resolved]
  - Disturbance in sexual arousal [Unknown]
